FAERS Safety Report 18744905 (Version 1)
Quarter: 2021Q1

REPORT INFORMATION
  Report Type: Report from Study
  Country: US (occurrence: US)
  Receive Date: 20210115
  Receipt Date: 20210115
  Transmission Date: 20210419
  Serious: Yes (Hospitalization, Other)
  Sender: FDA-Public Use
  Company Number: US-ALNYLAM PHARMACEUTICALS, INC.-ALN-2021-000060

PATIENT

DRUGS (3)
  1. GIVLAARI [Suspect]
     Active Substance: GIVOSIRAN SODIUM
     Dosage: 1.25 MILLIGRAM/KILOGRAM
     Route: 058
     Dates: start: 202010, end: 202010
  2. GIVLAARI [Suspect]
     Active Substance: GIVOSIRAN SODIUM
     Dosage: 2.5 MILLIGRAM/KILOGRAM
     Route: 058
     Dates: start: 202009, end: 202009
  3. GIVLAARI [Suspect]
     Active Substance: GIVOSIRAN SODIUM
     Indication: PORPHYRIA ACUTE
     Dosage: 1.25 MILLIGRAM/KILOGRAM
     Route: 058
     Dates: start: 202012

REACTIONS (3)
  - Anaphylactic reaction [Recovered/Resolved]
  - Porphyria acute [Recovered/Resolved]
  - Porphyria acute [Recovered/Resolved]

NARRATIVE: CASE EVENT DATE: 202009
